FAERS Safety Report 20595763 (Version 1)
Quarter: 2022Q1

REPORT INFORMATION
  Report Type: Spontaneous
  Country: US (occurrence: US)
  Receive Date: 20220315
  Receipt Date: 20220315
  Transmission Date: 20220424
  Serious: Yes (Other)
  Sender: FDA-Public Use
  Company Number: US-ELI_LILLY_AND_COMPANY-US202203001844

PATIENT
  Age: 58 Year
  Sex: Male

DRUGS (2)
  1. HUMALOG [Suspect]
     Active Substance: INSULIN LISPRO
     Indication: Product used for unknown indication
     Dosage: 20 INTERNATIONAL UNIT, DAILY AT NIGHT
     Route: 058
     Dates: start: 202110
  2. NOVOLOG [Suspect]
     Active Substance: INSULIN ASPART
     Indication: Product used for unknown indication
     Dosage: 20 INTERNATIONAL UNIT, BID IN THE MORNING AND AFTER NOON
     Route: 058
     Dates: start: 202110

REACTIONS (5)
  - Chest pain [Recovered/Resolved]
  - Dizziness [Unknown]
  - Balance disorder [Unknown]
  - Blood glucose decreased [Not Recovered/Not Resolved]
  - Injection site pain [Unknown]

NARRATIVE: CASE EVENT DATE: 20211001
